FAERS Safety Report 5373223-5 (Version None)
Quarter: 2007Q2

REPORT INFORMATION
  Report Type: 
  Country: None (occurrence: None)
  Receive Date: 20070628
  Receipt Date: 20070624
  Transmission Date: 20071010
  Serious: Yes (Death)
  Sender: FDA-Public Use
  Company Number: PHEH2007US08879

PATIENT
  Age: 51 Year
  Sex: Male
  Weight: 119.27 kg

DRUGS (20)
  1. CLOZARIL [Suspect]
     Indication: SCHIZOPHRENIA
     Dosage: 500 MG, QHS
     Dates: end: 20070407
  2. NORVASC [Concomitant]
     Dosage: 10 MG, UNK
  3. ASPIRIN [Concomitant]
     Dosage: 81 MG, UNK
  4. DDAVP                                   /UNK/ [Concomitant]
     Dosage: 0.2 MG, UNK
  5. FLONASE [Concomitant]
     Dosage: 16 MG (2 SQUIRTS EA NOSTRIL)
  6. SYNTHROID [Concomitant]
     Dosage: 137 MCG QD
  7. HYZAAR [Concomitant]
     Dosage: 50/12.5 QD
  8. VITAMIN CAP [Concomitant]
  9. RISPERDAL [Concomitant]
     Dosage: 3 MG, UNK
  10. LASIX [Concomitant]
     Dosage: 20 MG, UNK
  11. PRILOSEC [Concomitant]
     Dosage: 20 MG, UNK
  12. FENOFIBRATE [Concomitant]
     Dosage: 200 MG, QD
  13. CLONAZEPAM [Concomitant]
     Dosage: 1 MG, QD
  14. PROZAC [Concomitant]
     Dosage: 10 MG, QD
  15. ADVAIR DISKUS 100/50 [Concomitant]
     Dosage: UNK, BID
  16. SENNA [Concomitant]
     Dosage: 2 TAB BID
  17. TOPROL-XL [Concomitant]
     Dosage: 100 MG, UNK
  18. TYLENOL [Concomitant]
     Dosage: 650 MG, QID
  19. BENAZEPRIL HYDROCHLORIDE [Concomitant]
     Dosage: 20 MG, QD
  20. WELLBUTRIN [Concomitant]
     Dosage: 300 MG, UNK

REACTIONS (17)
  - ABDOMINAL PAIN [None]
  - ANASTOMOTIC LEAK [None]
  - CENTRAL VENOUS CATHETERISATION [None]
  - EXPLORATIVE LAPAROTOMY [None]
  - FLUID RETENTION [None]
  - GASTRECTOMY [None]
  - GASTRIC DISORDER [None]
  - GASTROINTESTINAL NECROSIS [None]
  - INCISION SITE COMPLICATION [None]
  - INTESTINAL PERFORATION [None]
  - INTUBATION [None]
  - MALNUTRITION [None]
  - OESOPHAGOENTEROSTOMY [None]
  - SEPTIC SHOCK [None]
  - SMALL INTESTINAL RESECTION [None]
  - SPLENECTOMY [None]
  - SPLENIC INFARCTION [None]
